FAERS Safety Report 7312154-8 (Version None)
Quarter: 2011Q1

REPORT INFORMATION
  Report Type: 
  Country: None (occurrence: None)
  Receive Date: 20110224
  Receipt Date: 20110217
  Transmission Date: 20110831
  Serious: Yes (Death, Hospitalization)
  Sender: FDA-Public Use
  Company Number: A0765929A

PATIENT
  Age: 47 Year
  Sex: Female
  Weight: 110.5 kg

DRUGS (9)
  1. FLONASE [Concomitant]
  2. ZOCOR [Concomitant]
  3. LISINOPRIL [Concomitant]
  4. AVANDAMET [Suspect]
     Route: 048
     Dates: start: 20070101, end: 20070305
  5. LEXAPRO [Concomitant]
  6. ALLEGRA [Concomitant]
  7. PROTONIX [Concomitant]
  8. DOXYCYCLINE [Concomitant]
  9. AVANDIA [Suspect]
     Dosage: 2MG PER DAY
     Route: 048
     Dates: start: 20060601, end: 20070101

REACTIONS (1)
  - DEEP VEIN THROMBOSIS [None]
